FAERS Safety Report 6087187-2 (Version None)
Quarter: 2009Q1

REPORT INFORMATION
  Report Type: 
  Country: None (occurrence: None)
  Receive Date: 20090223
  Receipt Date: 20090212
  Transmission Date: 20090719
  Serious: Yes (Hospitalization)
  Sender: FDA-Public Use
  Company Number: ES-MERCK-0902ESP00032

PATIENT
  Age: 43 Year
  Sex: Female
  Weight: 88 kg

DRUGS (6)
  1. ZETIA [Suspect]
     Indication: DYSLIPIDAEMIA
     Route: 048
     Dates: start: 20070210
  2. ATORVASTATIN CALCIUM [Concomitant]
     Indication: DYSLIPIDAEMIA
     Route: 048
     Dates: start: 20070117
  3. INSULIN ASPART [Concomitant]
     Indication: TYPE 2 DIABETES MELLITUS
     Route: 058
  4. INSULIN GLARGINE [Concomitant]
     Indication: TYPE 2 DIABETES MELLITUS
     Route: 058
  5. CLOPIDOGREL BISULFATE [Concomitant]
     Route: 048
  6. ASPIRIN [Concomitant]
     Route: 048

REACTIONS (2)
  - ANGIOPLASTY [None]
  - STENT PLACEMENT [None]
